FAERS Safety Report 8737884 (Version 3)
Quarter: 2012Q4

REPORT INFORMATION
  Report Type: Report from Study
  Country: JP (occurrence: JP)
  Receive Date: 20120823
  Receipt Date: 20120917
  Transmission Date: 20130627
  Serious: Yes (Hospitalization, Other)
  Sender: FDA-Public Use
  Company Number: JP-009507513-1208JPN003963

PATIENT

DRUGS (4)
  1. PEGINTRON [Suspect]
     Indication: HEPATITIS C
     Dosage: 1.5 Microgram per kilogram, qw
     Route: 058
     Dates: start: 20120712, end: 20120714
  2. REBETOL [Suspect]
     Indication: HEPATITIS C
     Dosage: 600 mg, qd
     Route: 048
     Dates: start: 20120712, end: 20120714
  3. TELAVIC [Suspect]
     Indication: HEPATITIS C
     Dosage: 2250mg,qd.
     Route: 048
     Dates: start: 20120712, end: 20120714
  4. URSO [Concomitant]
     Indication: HEPATITIS C
     Dosage: 600 mg, qd, formulation: POR
     Route: 048

REACTIONS (2)
  - Femoral neck fracture [Recovered/Resolved with Sequelae]
  - Fall [Recovered/Resolved with Sequelae]
